FAERS Safety Report 11083531 (Version 1)
Quarter: 2015Q2

REPORT INFORMATION
  Report Type: Report from Study
  Country: PR (occurrence: US)
  Receive Date: 20150501
  Receipt Date: 20150501
  Transmission Date: 20150821
  Serious: Yes (Other)
  Sender: FDA-Public Use
  Company Number: US-B.I. PHARMACEUTICALS,INC./RIDGEFIELD-2003-BP-09508BP

PATIENT
  Age: 26 Year
  Sex: Female

DRUGS (4)
  1. VIRAMUNE [Suspect]
     Active Substance: NEVIRAPINE
     Dosage: 200 MG
     Route: 048
     Dates: start: 20021029, end: 20021111
  2. VIRAMUNE [Suspect]
     Active Substance: NEVIRAPINE
     Indication: HIV INFECTION
     Dosage: 400 MG
     Route: 048
     Dates: start: 20021112
  3. COMBIVIR [Suspect]
     Active Substance: LAMIVUDINE\ZIDOVUDINE
     Indication: HIV INFECTION
     Dosage: TOTAL DAILY DOSE: 2 DAILY
     Route: 048
     Dates: start: 20021029
  4. FOLATE [Concomitant]
     Active Substance: FOLATE SODIUM
     Indication: SUPPLEMENTATION THERAPY
     Route: 065

REACTIONS (1)
  - Stillbirth [Unknown]
